FAERS Safety Report 21302334 (Version 2)
Quarter: 2022Q4

REPORT INFORMATION
  Report Type: Spontaneous
  Country: PL (occurrence: PL)
  Receive Date: 20220907
  Receipt Date: 20221005
  Transmission Date: 20230113
  Serious: Yes (Other)
  Sender: FDA-Public Use
  Company Number: PL-MYLANLABS-2022M1082549

PATIENT
  Age: 68 Year
  Sex: Male

DRUGS (4)
  1. PANCRELIPASE [Suspect]
     Active Substance: PANCRELIPASE
     Indication: Pancreatitis chronic
     Dosage: 25000
     Route: 048
     Dates: start: 20220824, end: 20220826
  2. PANCRELIPASE [Suspect]
     Active Substance: PANCRELIPASE
     Indication: Pancreatitis chronic
     Dosage: UNK
     Route: 048
     Dates: start: 20220727
  3. PANCRELIPASE [Suspect]
     Active Substance: PANCRELIPASE
     Indication: Pancreatitis chronic
     Dosage: UNK, (7 CAPSULES PER TWO DAYS)
     Route: 048
     Dates: start: 20220726, end: 20220727
  4. PANCRELIPASE [Suspect]
     Active Substance: PANCRELIPASE
     Indication: Pancreatitis chronic
     Dosage: UNK
     Route: 048
     Dates: start: 2022

REACTIONS (10)
  - Large intestinal haemorrhage [Unknown]
  - Dysuria [Unknown]
  - Faeces discoloured [Unknown]
  - Abdominal discomfort [Recovered/Resolved]
  - Urine abnormality [Unknown]
  - Abdominal pain lower [Unknown]
  - Product storage error [Unknown]
  - Dry mouth [Recovered/Resolved]
  - Bone pain [Unknown]
  - Drug ineffective [Unknown]

NARRATIVE: CASE EVENT DATE: 20220727
